FAERS Safety Report 18417870 (Version 1)
Quarter: 2020Q4

REPORT INFORMATION
  Report Type: Spontaneous
  Country: CN (occurrence: CN)
  Receive Date: 20201022
  Receipt Date: 20201022
  Transmission Date: 20210114
  Serious: Yes (Death, Other)
  Sender: FDA-Public Use
  Company Number: CN-JIANGSU HENGRUI MEDICINE CO., LTD.-2093044

PATIENT
  Age: 68 Year
  Sex: Male

DRUGS (4)
  1. IRINOTECAN HYDROCHLORIDE INJECTION, 20 MG/ML (2 ML AND 5 ML VIALS) (AN [Suspect]
     Active Substance: IRINOTECAN HYDROCHLORIDE
     Indication: SMALL CELL LUNG CANCER
     Route: 041
     Dates: start: 20150916, end: 20150916
  2. CISPLATIN. [Suspect]
     Active Substance: CISPLATIN
     Route: 041
     Dates: start: 20150916, end: 20150918
  3. VORICONAZOLE. [Concomitant]
     Active Substance: VORICONAZOLE
     Dates: start: 20151112, end: 20151121
  4. POSACONAZOLE [Concomitant]
     Active Substance: POSACONAZOLE
     Dates: start: 20151122, end: 20151207

REACTIONS (6)
  - Diarrhoea infectious [Unknown]
  - Bone marrow failure [Fatal]
  - Liver injury [Fatal]
  - Agranulocytosis [Unknown]
  - Product use in unapproved indication [Unknown]
  - Pulmonary mucormycosis [Unknown]

NARRATIVE: CASE EVENT DATE: 20150916
